FAERS Safety Report 21525996 (Version 1)
Quarter: 2022Q4

REPORT INFORMATION
  Report Type: Spontaneous
  Country: KR (occurrence: KR)
  Receive Date: 20221031
  Receipt Date: 20221031
  Transmission Date: 20230113
  Serious: Yes (Other)
  Sender: FDA-Public Use
  Company Number: KR-UCBSA-2022062015

PATIENT
  Age: 7 Year
  Sex: Male

DRUGS (3)
  1. KEPPRA [Suspect]
     Active Substance: LEVETIRACETAM
     Indication: Craniosynostosis
     Dosage: 4 MILLILITER, ONCE DAILY (QD)
     Route: 048
     Dates: start: 20180521, end: 20180528
  2. KEPPRA [Suspect]
     Active Substance: LEVETIRACETAM
     Indication: Off label use
  3. LAMOTRIGINE [Suspect]
     Active Substance: LAMOTRIGINE
     Indication: Craniosynostosis
     Dosage: 12.5 MILLIGRAM, ONCE DAILY (QD)
     Route: 048
     Dates: start: 20180529, end: 20180603

REACTIONS (4)
  - Leukopenia [Recovered/Resolved]
  - Pruritus [Recovered/Resolved]
  - Rash [Recovered/Resolved]
  - Off label use [Unknown]

NARRATIVE: CASE EVENT DATE: 20180521
